FAERS Safety Report 21989859 (Version 1)
Quarter: 2023Q1

REPORT INFORMATION
  Report Type: Spontaneous
  Country: GB (occurrence: IN)
  Receive Date: 20230214
  Receipt Date: 20230214
  Transmission Date: 20230417
  Serious: Yes (Death, Other)
  Sender: FDA-Public Use
  Company Number: GB-PFIZER INC-202300059599

PATIENT
  Age: 69 Year
  Sex: Female

DRUGS (4)
  1. PALBOCICLIB [Suspect]
     Active Substance: PALBOCICLIB
     Indication: Breast cancer metastatic
     Dosage: 125 MG, CYCLIC (DAILY 3 WEEKS ON, 1 WEEK OFF)
     Route: 048
     Dates: start: 20190402
  2. LETROZOLE [Concomitant]
     Active Substance: LETROZOLE
     Indication: Breast cancer
     Dosage: 1 DF, DAILY
  3. LETROZOLE [Concomitant]
     Active Substance: LETROZOLE
     Dosage: 25 MG
  4. ZOLEDRONIC ACID [Concomitant]
     Active Substance: ZOLEDRONIC ACID
     Dosage: UNK, EVERY 2 MONTHS

REACTIONS (1)
  - Acute cardiac event [Fatal]
